FAERS Safety Report 6690358-5 (Version None)
Quarter: 2010Q2

REPORT INFORMATION
  Report Type: 
  Country: None (occurrence: None)
  Receive Date: 20100419
  Receipt Date: 20100419
  Transmission Date: 20101027
  Serious: No
  Sender: FDA-Public Use
  Company Number: None

PATIENT
  Age: 86 Year
  Sex: Female

DRUGS (1)
  1. AMIKACIN [Suspect]

REACTIONS (3)
  - DRUG DISPENSING ERROR [None]
  - DRUG DOSE OMISSION [None]
  - MEDICATION ERROR [None]
